FAERS Safety Report 14138136 (Version 2)
Quarter: 2017Q4

REPORT INFORMATION
  Report Type: Spontaneous
  Country: AU (occurrence: AU)
  Receive Date: 20171027
  Receipt Date: 20171221
  Transmission Date: 20180321
  Serious: Yes (Hospitalization)
  Sender: FDA-Public Use
  Company Number: AU-SA-2017SA204313

PATIENT
  Age: 3 Year
  Sex: Female

DRUGS (1)
  1. FEXOFENADINE [Suspect]
     Active Substance: FEXOFENADINE\FEXOFENADINE HYDROCHLORIDE
     Route: 048
     Dates: start: 20171011

REACTIONS (8)
  - Nausea [Unknown]
  - Failure of child resistant mechanism for pharmaceutical product [Unknown]
  - Psychomotor hyperactivity [Unknown]
  - Abdominal pain upper [Unknown]
  - Vomiting [Unknown]
  - Accidental overdose [Unknown]
  - Somnolence [Unknown]
  - Accidental exposure to product by child [Unknown]
